FAERS Safety Report 21423321 (Version 1)
Quarter: 2022Q4

REPORT INFORMATION
  Report Type: Spontaneous
  Country: CZ (occurrence: CZ)
  Receive Date: 20221007
  Receipt Date: 20221007
  Transmission Date: 20230113
  Serious: Yes (Other)
  Sender: FDA-Public Use
  Company Number: CZ-BAYER-2022A136262

PATIENT
  Age: 31 Year
  Sex: Female
  Weight: 61 kg

DRUGS (1)
  1. MIRENA [Suspect]
     Active Substance: LEVONORGESTREL
     Dosage: 20?G/DAY
     Route: 015
     Dates: start: 20201201, end: 20220401

REACTIONS (10)
  - Autoimmune thyroid disorder [None]
  - Thyroid disorder [Recovered/Resolved]
  - Fatigue [Recovered/Resolved]
  - Depression [Recovered/Resolved]
  - Apathy [Recovered/Resolved]
  - Decreased appetite [Recovered/Resolved]
  - Amenorrhoea [Recovered/Resolved]
  - Abdominal pain lower [Recovered/Resolved]
  - Loss of libido [None]
  - Decreased interest [Recovered/Resolved]

NARRATIVE: CASE EVENT DATE: 20201201
